FAERS Safety Report 11347311 (Version 1)
Quarter: 2015Q3

REPORT INFORMATION
  Report Type: Spontaneous
  Country: FR (occurrence: FR)
  Receive Date: 20150806
  Receipt Date: 20150806
  Transmission Date: 20151125
  Serious: Yes (Hospitalization)
  Sender: FDA-Public Use
  Company Number: FR-PFIZER INC-2015255967

PATIENT
  Age: 40 Year
  Sex: Male

DRUGS (9)
  1. SOLUPRED /00016201/ [Concomitant]
     Active Substance: PREDNISOLONE
     Indication: NASAL POLYPS
  2. MIDAZOLAM [Suspect]
     Active Substance: MIDAZOLAM\MIDAZOLAM HYDROCHLORIDE
     Indication: INDUCTION OF ANAESTHESIA
     Dosage: UNK, SINGLE
     Route: 042
     Dates: start: 20130604, end: 20130604
  3. PROFENID [Suspect]
     Active Substance: KETOPROFEN
     Dosage: UNK
     Route: 042
     Dates: start: 20130604, end: 20130604
  4. DIPRIVAN [Suspect]
     Active Substance: PROPOFOL
     Indication: INDUCTION OF ANAESTHESIA
     Dosage: UNK, SINGLE
     Route: 042
     Dates: start: 20130604, end: 20130604
  5. NIMBEX [Suspect]
     Active Substance: CISATRACURIUM BESYLATE
     Indication: INDUCTION OF ANAESTHESIA
     Dosage: UNK, SINGLE
     Route: 042
     Dates: start: 20130604, end: 20130604
  6. IBUPROFEN. [Concomitant]
     Active Substance: IBUPROFEN
  7. AUGMENTIN [Suspect]
     Active Substance: AMOXICILLIN\CLAVULANATE POTASSIUM
     Dosage: UNK
     Route: 042
     Dates: start: 20130604, end: 20130604
  8. SUFENTANIL [Suspect]
     Active Substance: SUFENTANIL
     Indication: INDUCTION OF ANAESTHESIA
     Dosage: UNK, SINGLE
     Route: 042
     Dates: start: 20130604, end: 20130604
  9. SOLU-MEDROL [Suspect]
     Active Substance: METHYLPREDNISOLONE SODIUM SUCCINATE
     Dosage: UNK
     Route: 042
     Dates: start: 20130604, end: 20130604

REACTIONS (5)
  - Generalised erythema [Recovered/Resolved]
  - Hypotension [Recovered/Resolved]
  - Anaphylactoid shock [Recovered/Resolved]
  - Tachycardia [Recovered/Resolved]
  - Oxygen saturation decreased [Recovered/Resolved]

NARRATIVE: CASE EVENT DATE: 20130604
